FAERS Safety Report 15681504 (Version 1)
Quarter: 2018Q4

REPORT INFORMATION
  Report Type: Spontaneous
  Country: US (occurrence: US)
  Receive Date: 20181121
  Receipt Date: 20181121
  Transmission Date: 20190205
  Serious: No
  Sender: FDA-Public Use
  Company Number: None

PATIENT
  Age: 36 Year
  Sex: Female

DRUGS (1)
  1. ENOXAPARIN SYR 80MG/0.8ML [Suspect]
     Active Substance: ENOXAPARIN SODIUM
     Indication: THROMBOSIS
     Dates: start: 201810

REACTIONS (5)
  - Product dose omission [None]
  - Insurance issue [None]
  - Maternal exposure during breast feeding [None]
  - Condition aggravated [None]
  - Contusion [None]

NARRATIVE: CASE EVENT DATE: 20181107
